FAERS Safety Report 21448172 (Version 1)
Quarter: 2022Q4

REPORT INFORMATION
  Report Type: Spontaneous
  Country: DE (occurrence: DE)
  Receive Date: 20221012
  Receipt Date: 20221012
  Transmission Date: 20230113
  Serious: Yes (Hospitalization)
  Sender: FDA-Public Use
  Company Number: DE-ADRED-07959-01

PATIENT
  Age: 60 Year
  Sex: Male
  Weight: 69 kg

DRUGS (10)
  1. PANTOPRAZOLE [Suspect]
     Active Substance: PANTOPRAZOLE
     Indication: Product used for unknown indication
     Dosage: 20 MG, SCHEME
     Route: 065
  2. SPIRONOLACTONE [Suspect]
     Active Substance: SPIRONOLACTONE
     Indication: Product used for unknown indication
     Dosage: 25 MILLIGRAM DAILY;  0.5-0-0-0, UNIT DOSE : 25  MG, FREQUENCY ; 1 , FREQUENCY TIME : 1 DAYS,
     Route: 065
  3. CANDESARTAN CILEXETIL AND HYDROCHLOROTHIAZIDE [Suspect]
     Active Substance: CANDESARTAN CILEXETIL\HYDROCHLOROTHIAZIDE
     Indication: Product used for unknown indication
     Dosage: 1 DOSAGE FORMS DAILY; 32|25 MG, 1-0-0-0, UNIT DOSE : 1 DOSAGE FORMS, FREQUENCY ; 1 , FREQUENCY TIME
  4. IBUPROFEN [Concomitant]
     Active Substance: IBUPROFEN
     Indication: Product used for unknown indication
     Dosage: 600 MG, REQUIREMENT
  5. ASPIRIN [Concomitant]
     Active Substance: ASPIRIN
     Indication: Product used for unknown indication
     Dosage: 100 MILLIGRAM DAILY;  0-1-0-0, UNIT DOSE : 100 MG, FREQUENCY ; 1 , FREQUENCY TIME : 1 DAYS,
  6. NALOXONE HYDROCHLORIDE\TILIDINE HYDROCHLORIDE [Concomitant]
     Active Substance: NALOXONE HYDROCHLORIDE\TILIDINE HYDROCHLORIDE
     Indication: Product used for unknown indication
     Dosage: REQUIREMENT
  7. CHOLECALCIFEROL [Concomitant]
     Active Substance: CHOLECALCIFEROL
     Indication: Product used for unknown indication
     Dosage: 20000 IU, EVERY 2 WEEKS
  8. METOPROLOL [Concomitant]
     Active Substance: METOPROLOL
     Indication: Product used for unknown indication
     Dosage: 1 DOSAGE FORMS DAILY; 47.5 MG, 0.5-0-0.5-0, UNIT DOSE : 0.5 DOSAGE FORMS, FREQUENCY ; 2 , FREQUENCY
  9. Atorvastatin/Ezetimib [Concomitant]
     Indication: Product used for unknown indication
     Dosage: 1 DOSAGE FORMS DAILY; 10|80 MG, 0-0-1-0, UNIT DOSE : 1 DOSAGE FORMS, FREQUENCY ; 1 , FREQUENCY TIME
  10. ALLOPURINOL [Concomitant]
     Active Substance: ALLOPURINOL
     Indication: Product used for unknown indication
     Dosage: 50 MILLIGRAM DAILY; 0-0-1-0, UNIT DOSE : 50 MG, FREQUENCY ; 1 , FREQUENCY TIME : 1 DAYS,

REACTIONS (8)
  - Renal impairment [Unknown]
  - Systemic infection [Unknown]
  - Electrolyte imbalance [Unknown]
  - Electrocardiogram abnormal [Unknown]
  - Anaemia [Unknown]
  - General physical health deterioration [Unknown]
  - Chest pain [Unknown]
  - Hypotension [Unknown]
